FAERS Safety Report 6337629-X (Version None)
Quarter: 2009Q3

REPORT INFORMATION
  Report Type: 
  Country: None (occurrence: None)
  Receive Date: 20090902
  Receipt Date: 20090821
  Transmission Date: 20100115
  Serious: No
  Sender: FDA-Public Use
  Company Number: US-ELI_LILLY_AND_COMPANY-US200908005614

PATIENT
  Age: 39 Year
  Sex: Male

DRUGS (4)
  1. CYMBALTA [Suspect]
     Dosage: 180 MG, DAILY (1/D)
     Route: 048
     Dates: end: 20090305
  2. CYMBALTA [Suspect]
     Dosage: 120 MG, DAILY (1/D)
     Route: 048
     Dates: start: 20090305
  3. NORCO [Concomitant]
     Dosage: 60 MG, DAILY (1/D)
  4. LYRICA [Concomitant]
     Dosage: 600 MG, DAILY (1/D)

REACTIONS (3)
  - ALANINE AMINOTRANSFERASE INCREASED [None]
  - LIVER FUNCTION TEST ABNORMAL [None]
  - OVERDOSE [None]
